FAERS Safety Report 4389401-8 (Version None)
Quarter: 2004Q2

REPORT INFORMATION
  Report Type: 
  Country: None (occurrence: None)
  Receive Date: 20040628
  Receipt Date: 20040615
  Transmission Date: 20050107
  Serious: Yes (Death, Hospitalization)
  Sender: FDA-Public Use
  Company Number: US-JNJFOC-20040604322

PATIENT
  Age: 84 Year
  Sex: Female
  Weight: 55.7924 kg

DRUGS (7)
  1. REMICADE [Suspect]
     Indication: CROHN'S DISEASE
     Dosage: 250 MG, INTRAVENOUS
     Route: 042
     Dates: start: 20040201
  2. ASACOL [Concomitant]
  3. LESCOL [Concomitant]
  4. SYNTHROID [Concomitant]
  5. TYLENOL [Concomitant]
  6. PRILOSEC [Concomitant]
  7. LASIX [Concomitant]

REACTIONS (3)
  - ADENOCARCINOMA [None]
  - CARDIAC FAILURE CONGESTIVE [None]
  - NON-SMALL CELL LUNG CANCER [None]
